FAERS Safety Report 24296034 (Version 1)
Quarter: 2024Q3

REPORT INFORMATION
  Report Type: Spontaneous
  Country: GB (occurrence: GB)
  Receive Date: 20240909
  Receipt Date: 20240909
  Transmission Date: 20241016
  Serious: Yes (Other)
  Sender: ESPERION THERAPEUTICS
  Company Number: GB-MHRA-TPP29454027C2521041YC1724857509425

PATIENT

DRUGS (10)
  1. BEMPEDOIC ACID\EZETIMIBE [Suspect]
     Active Substance: BEMPEDOIC ACID\EZETIMIBE
     Indication: Product used for unknown indication
     Dosage: UNK (180/10 MG TABLETS)
     Route: 065
  2. SILDENAFIL [Concomitant]
     Active Substance: SILDENAFIL
     Indication: Ill-defined disorder
     Dosage: UNK (TAKE ONE TABLET AT LEAST ONE HOUR BEFORE SEXUAL ACTIVITY IS ANTICIPATED)
     Route: 065
     Dates: start: 20240729, end: 20240826
  3. BETAMETHASONE VALERATE [Concomitant]
     Active Substance: BETAMETHASONE VALERATE
     Indication: Ill-defined disorder
     Dosage: UNK (APPLY THINLY TO DRY HAIR IN THE MORNING AND AT NIGHT)
     Route: 065
     Dates: start: 20240729, end: 20240826
  4. LANSOPRAZOLE [Concomitant]
     Active Substance: LANSOPRAZOLE
     Indication: Ill-defined disorder
     Dosage: 1 DF, QD (TAKE ONE ONCE DAILY)
     Route: 065
     Dates: start: 20240819
  5. ASPIRIN [Concomitant]
     Active Substance: ASPIRIN
     Indication: Ill-defined disorder
     Dosage: 1 DF, QD (TAKE ONE DAILY)
     Route: 065
     Dates: start: 20240508
  6. EMPAGLIFLOZIN [Concomitant]
     Active Substance: EMPAGLIFLOZIN
     Indication: Ill-defined disorder
     Dosage: 1 DF, QD (TAKE ONE DAILY)
     Route: 065
     Dates: start: 20240508
  7. METOPROLOL TARTRATE [Concomitant]
     Active Substance: METOPROLOL TARTRATE
     Indication: Ill-defined disorder
     Dosage: 0.5 DF, BID (TAKE HALF A TABLET  TWICE DAILY)
     Route: 065
     Dates: start: 20240508
  8. RAMIPRIL [Concomitant]
     Active Substance: RAMIPRIL
     Indication: Ill-defined disorder
     Dosage: 1 DF, QD (TAKE ONE DAILY)
     Route: 065
     Dates: start: 20240508
  9. ROSUVASTATIN [Concomitant]
     Active Substance: ROSUVASTATIN\ROSUVASTATIN CALCIUM
     Indication: Ill-defined disorder
     Dosage: 1 DF, QD (TAKE ONE DAILY)
     Route: 065
     Dates: start: 20240508
  10. BEMPEDOIC ACID [Concomitant]
     Active Substance: BEMPEDOIC ACID
     Indication: Ill-defined disorder
     Dosage: 1 DF, QD (TAKE ONE DAILY)
     Route: 065
     Dates: start: 20240815, end: 20240828

REACTIONS (3)
  - Chest pain [Recovered/Resolved]
  - Muscle spasms [Recovered/Resolved]
  - Abdominal pain [Recovered/Resolved]
